FAERS Safety Report 7042152-3 (Version None)
Quarter: 2010Q4

REPORT INFORMATION
  Report Type: 
  Country: None (occurrence: None)
  Receive Date: 20101013
  Receipt Date: 20090928
  Transmission Date: 20110411
  Serious: No
  Sender: FDA-Public Use
  Company Number: US-ASTRAZENECA-2009SE21734

PATIENT
  Age: 64 Year
  Sex: Female

DRUGS (7)
  1. SYMBICORT [Suspect]
     Indication: ASTHMA
     Dosage: 160/4.5 BID
     Route: 055
     Dates: start: 20090701
  2. SPIRIVA [Concomitant]
  3. CELEXA [Concomitant]
  4. BENECAR [Concomitant]
  5. DAILY VITAMIN [Concomitant]
  6. CALCIUM [Concomitant]
  7. GLUCOSAMINE CONDROITIN [Concomitant]

REACTIONS (1)
  - STOMATITIS [None]
